FAERS Safety Report 21086927 (Version 1)
Quarter: 2022Q3

REPORT INFORMATION
  Report Type: Spontaneous
  Country: US (occurrence: US)
  Receive Date: 20220715
  Receipt Date: 20220715
  Transmission Date: 20221026
  Serious: Yes (Hospitalization, Other)
  Sender: FDA-Public Use
  Company Number: US-HORMOSAN PHARMA GMBH-2022-09428

PATIENT
  Age: 75 Year
  Sex: Male

DRUGS (6)
  1. DULOXETINE [Interacting]
     Active Substance: DULOXETINE
     Indication: Major depression
     Dosage: 30 MG, QD
     Route: 065
  2. METOPROLOL [Interacting]
     Active Substance: METOPROLOL
     Indication: Hypertension
     Dosage: 25 MG, QD
     Route: 065
  3. LISINOPRIL [Concomitant]
     Active Substance: LISINOPRIL
     Indication: Hypertension
     Dosage: 10 MG, QD
     Route: 065
  4. FUROSEMIDE [Concomitant]
     Active Substance: FUROSEMIDE
     Indication: Hypertension
     Dosage: 20 MG, BID
     Route: 065
  5. ALLOPURINOL [Concomitant]
     Active Substance: ALLOPURINOL
     Indication: Alcohol use disorder
     Dosage: 300 MG, QD
     Route: 065
  6. SIMVASTATIN [Concomitant]
     Active Substance: SIMVASTATIN
     Indication: Hyperlipidaemia
     Dosage: 20 MG, QD
     Route: 065

REACTIONS (6)
  - Withdrawal hypertension [Unknown]
  - Haemodynamic instability [Unknown]
  - Hypertensive emergency [Unknown]
  - Ischaemic stroke [Unknown]
  - Drug interaction [Unknown]
  - Treatment noncompliance [Unknown]
